FAERS Safety Report 11965121 (Version 1)
Quarter: 2016Q1

REPORT INFORMATION
  Report Type: Spontaneous
  Country: US (occurrence: US)
  Receive Date: 20160127
  Receipt Date: 20160127
  Transmission Date: 20160526
  Serious: No
  Sender: FDA-Public Use
  Company Number: US-009507513-1601USA007884

PATIENT
  Age: 26 Year
  Sex: Female

DRUGS (2)
  1. PROZAC [Concomitant]
     Active Substance: FLUOXETINE HYDROCHLORIDE
  2. NEXPLANON [Suspect]
     Active Substance: ETONOGESTREL
     Indication: CONTRACEPTION
     Dosage: EVERY THREE YEARS
     Route: 059
     Dates: start: 201402

REACTIONS (6)
  - Balance disorder [Unknown]
  - Depressed mood [Unknown]
  - Hypertension [Unknown]
  - Muscle spasms [Unknown]
  - Vaginal discharge [Unknown]
  - Nausea [Unknown]

NARRATIVE: CASE EVENT DATE: 201508
